FAERS Safety Report 15689178 (Version 1)
Quarter: 2018Q4

REPORT INFORMATION
  Report Type: Spontaneous
  Country: ES (occurrence: ES)
  Receive Date: 20181205
  Receipt Date: 20181205
  Transmission Date: 20190205
  Serious: Yes (Hospitalization)
  Sender: FDA-Public Use
  Company Number: PHHY2018ES172066

PATIENT
  Age: 14 Year
  Sex: Male

DRUGS (11)
  1. MABTHERA [Interacting]
     Active Substance: RITUXIMAB
     Indication: EPSTEIN-BARR VIRUS INFECTION
     Dosage: 675 MG, QW
     Route: 042
     Dates: start: 20170830, end: 20170913
  2. MYCOPHENOLATE MOFETIL. [Suspect]
     Active Substance: MYCOPHENOLATE MOFETIL
     Indication: APLASTIC ANAEMIA
     Dosage: 500 MG, Q12H
     Route: 048
     Dates: start: 20170403
  3. HIDROCORTISONA [Concomitant]
     Active Substance: HYDROCORTISONE
     Indication: ADRENAL INSUFFICIENCY
     Dosage: 30 MG, QD
     Route: 048
     Dates: start: 201611, end: 20171027
  4. FOLIC ACID. [Concomitant]
     Active Substance: FOLIC ACID
     Indication: PRODUCT USED FOR UNKNOWN INDICATION
     Dosage: 5 MG, QW
     Route: 048
     Dates: start: 201611, end: 20171027
  5. OMEPRAZOL [Concomitant]
     Active Substance: OMEPRAZOLE
     Indication: PROPHYLAXIS AGAINST GASTROINTESTINAL ULCER
     Dosage: 20 MG, QD
     Route: 048
     Dates: start: 201611
  6. COLECALCIFEROL [Concomitant]
     Active Substance: CHOLECALCIFEROL
     Indication: OSTEOPOROSIS PROPHYLAXIS
     Dosage: 0.4 ML, QD
     Route: 048
     Dates: start: 201611
  7. AMLODIPINE [Concomitant]
     Active Substance: AMLODIPINE BESYLATE
     Indication: HYPERTENSION
     Dosage: 5 MG, QD
     Route: 048
     Dates: start: 201611, end: 201709
  8. AMOXICILLIN. [Concomitant]
     Active Substance: AMOXICILLIN
     Indication: OPPORTUNISTIC INFECTION PROPHYLAXIS
     Dosage: 500 MG, QD
     Route: 048
     Dates: start: 201611
  9. ACICLOVIR [Concomitant]
     Active Substance: ACYCLOVIR
     Indication: OPPORTUNISTIC INFECTION PROPHYLAXIS
     Dosage: 400 MG, Q8H
     Route: 048
     Dates: start: 201611
  10. POSACONAZOL [Concomitant]
     Active Substance: POSACONAZOLE
     Indication: OPPORTUNISTIC INFECTION PROPHYLAXIS
     Dosage: 300 MG, QD
     Route: 048
     Dates: start: 201611
  11. SEPTRIN FORTE [Concomitant]
     Active Substance: SULFAMETHOXAZOLE\TRIMETHOPRIM
     Indication: OPPORTUNISTIC INFECTION PROPHYLAXIS
     Dosage: 3 ?G/L, QW
     Route: 048
     Dates: start: 201611

REACTIONS (1)
  - Laryngitis [Recovered/Resolved]

NARRATIVE: CASE EVENT DATE: 20171019
